FAERS Safety Report 7575199-9 (Version None)
Quarter: 2011Q2

REPORT INFORMATION
  Report Type: 
  Country: None (occurrence: None)
  Receive Date: 20110627
  Receipt Date: 20110608
  Transmission Date: 20111010
  Serious: Yes (Hospitalization, Other)
  Sender: FDA-Public Use
  Company Number: US-BAYER-2011-009635

PATIENT
  Age: 49 Year
  Sex: Male
  Weight: 87.982 kg

DRUGS (10)
  1. TRASYLOL [Suspect]
     Indication: CORONARY ARTERY BYPASS
     Dosage: 2 ML TEST DOSE
     Route: 042
     Dates: start: 20050323, end: 20050323
  2. NITROGLYCERIN [Concomitant]
     Dosage: UNK UNK, PRN
     Route: 060
  3. NORVASC [Concomitant]
     Dosage: UNK
     Route: 048
     Dates: start: 20030101
  4. LOPRESSOR [Concomitant]
     Dosage: 10 MG, UNK
     Route: 042
     Dates: start: 20050323
  5. ACETYLSALICYLIC ACID SRT [Concomitant]
     Dosage: 325 MG, QD
     Route: 048
  6. HEPARIN [Concomitant]
     Dosage: 63000 U, UNK
     Route: 042
     Dates: start: 20050323
  7. PROTAMINE SULFATE [Concomitant]
     Dosage: 630 MG, UNK
     Route: 042
     Dates: start: 20050323
  8. TRASYLOL [Suspect]
     Dosage: 200 ML LOADING DOSE FOLLOWED BY 50 ML / HOUR DRIP
     Dates: start: 20050323, end: 20050323
  9. CARDENE [Concomitant]
     Dosage: 500 MG, UNK
     Route: 042
     Dates: start: 20050323
  10. NITROGLYCERIN [Concomitant]
     Dosage: UNK
     Route: 042
     Dates: start: 20050323

REACTIONS (13)
  - RENAL INJURY [None]
  - FEAR [None]
  - INJURY [None]
  - PAIN [None]
  - ANXIETY [None]
  - MULTI-ORGAN FAILURE [None]
  - UNEVALUABLE EVENT [None]
  - EMOTIONAL DISTRESS [None]
  - FEAR OF DEATH [None]
  - DEPRESSION [None]
  - ANHEDONIA [None]
  - RENAL FAILURE [None]
  - NERVOUSNESS [None]
